FAERS Safety Report 8957028 (Version 4)
Quarter: 2014Q2

REPORT INFORMATION
  Report Type: Spontaneous
  Country: CA (occurrence: CA)
  Receive Date: 20121211
  Receipt Date: 20140421
  Transmission Date: 20141212
  Serious: Yes (Other)
  Sender: FDA-Public Use
  Company Number: CA-PFIZER INC-2012308226

PATIENT
  Age: 15 Year
  Sex: Female

DRUGS (1)
  1. SUNITINIB MALATE [Suspect]
     Indication: LYMPHANGIOMA
     Dosage: 25 MG, ALTERNATE DAY (EVERY OTHER DAY, CONTINUOUS)
     Route: 048
     Dates: start: 201206

REACTIONS (3)
  - Off label use [Unknown]
  - Disseminated intravascular coagulation [Recovering/Resolving]
  - Platelet count decreased [Recovered/Resolved]
